FAERS Safety Report 6868929-2 (Version None)
Quarter: 2010Q3

REPORT INFORMATION
  Report Type: 
  Country: None (occurrence: None)
  Receive Date: 20100722
  Receipt Date: 20080804
  Transmission Date: 20110219
  Serious: Yes (Other)
  Sender: FDA-Public Use
  Company Number: US-PFIZER INC-2008052904

PATIENT
  Age: 37 Year
  Sex: Female
  Weight: 61.2 kg

DRUGS (4)
  1. CHANTIX [Suspect]
     Indication: SMOKING CESSATION THERAPY
     Dates: start: 20070905, end: 20071001
  2. XANAX [Suspect]
     Dates: end: 20080201
  3. GEODON [Concomitant]
  4. LAMICTAL [Concomitant]

REACTIONS (6)
  - ANXIETY [None]
  - IRRITABILITY [None]
  - MAJOR DEPRESSION [None]
  - OVERDOSE [None]
  - SUICIDAL IDEATION [None]
  - SUICIDE ATTEMPT [None]
